FAERS Safety Report 4344975-8 (Version None)
Quarter: 2004Q2

REPORT INFORMATION
  Report Type: 
  Country: None (occurrence: None)
  Receive Date: 20040420
  Receipt Date: 20040402
  Transmission Date: 20050107
  Serious: Yes (Other)
  Sender: FDA-Public Use
  Company Number: EM2004-0192

PATIENT
  Age: 20 Year
  Sex: 0

DRUGS (1)
  1. TOBI [Suspect]
     Dosage: 300 MG, BID X 1 WEEK, INHALATION
     Route: 055

REACTIONS (1)
  - RENAL FAILURE ACUTE [None]
